FAERS Safety Report 17043052 (Version 2)
Quarter: 2019Q4

REPORT INFORMATION
  Report Type: Report from Study
  Country: JP (occurrence: JP)
  Receive Date: 20191118
  Receipt Date: 20191119
  Transmission Date: 20200122
  Serious: Yes (Death)
  Sender: FDA-Public Use
  Company Number: JP-CELGENEUS-JPN-20191105878

PATIENT
  Age: 49 Year
  Sex: Male
  Weight: 41.3 kg

DRUGS (1)
  1. REVLIMID [Suspect]
     Active Substance: LENALIDOMIDE
     Indication: ADULT T-CELL LYMPHOMA/LEUKAEMIA
     Dosage: UNKNOWN
     Route: 048
     Dates: start: 20190903, end: 20191114

REACTIONS (1)
  - Death [Fatal]

NARRATIVE: CASE EVENT DATE: 20191115
